FAERS Safety Report 4790476-2 (Version None)
Quarter: 2005Q4

REPORT INFORMATION
  Report Type: 
  Country: None (occurrence: None)
  Receive Date: 20051005
  Receipt Date: 20050915
  Transmission Date: 20060501
  Serious: Yes (Other)
  Sender: FDA-Public Use
  Company Number: USA0509108376

PATIENT
  Age: 55 Year
  Sex: Female

DRUGS (7)
  1. CYMBALTA [Suspect]
     Dosage: 60 MG
  2. CLORAZIN (CLOZAPINE) [Concomitant]
  3. PAXIL [Concomitant]
  4. SYNTHROID [Concomitant]
  5. ATIVAN [Concomitant]
  6. SEROQUEL [Concomitant]
  7. RESTORIL [Concomitant]

REACTIONS (1)
  - HEPATIC ENZYME INCREASED [None]
